FAERS Safety Report 26193638 (Version 1)
Quarter: 2025Q4

REPORT INFORMATION
  Report Type: Report from Study
  Country: MX (occurrence: MX)
  Receive Date: 20251224
  Receipt Date: 20251224
  Transmission Date: 20260117
  Serious: Yes (Death, Hospitalization, Other)
  Sender: ABBVIE
  Company Number: MX-ABBVIE-6603334

PATIENT
  Age: 76 Year
  Sex: Female
  Weight: 40 kg

DRUGS (5)
  1. VENCLEXTA [Suspect]
     Active Substance: VENETOCLAX
     Indication: Chronic lymphocytic leukaemia
     Dosage: VENCLEXTA 100 MG X 120
     Route: 048
     Dates: start: 20250811, end: 202510
  2. VENCLEXTA [Suspect]
     Active Substance: VENETOCLAX
     Indication: Chronic lymphocytic leukaemia
     Dosage: DOSE: QUARTER TABLET EVERY 24 HOURS
     Route: 048
     Dates: start: 202510, end: 202511
  3. MYCOPHENOLIC ACID [Concomitant]
     Active Substance: MYCOPHENOLIC ACID
     Indication: Systemic lupus erythematosus
     Route: 048
     Dates: start: 2010, end: 202511
  4. PREDNISONE [Concomitant]
     Active Substance: PREDNISONE
     Indication: Chronic lymphocytic leukaemia
     Route: 048
     Dates: end: 202511
  5. EXETIN A [Concomitant]
     Indication: Chronic lymphocytic leukaemia
     Dosage: ROA: INJECTABLE SOLUTION, ONE PREFILLED SYRINGE.
     Route: 058
     Dates: end: 202511

REACTIONS (16)
  - Systemic lupus erythematosus [Fatal]
  - Chronic lymphocytic leukaemia [Fatal]
  - Pyrexia [Recovered/Resolved]
  - Pain [Recovered/Resolved]
  - Vomiting [Recovered/Resolved]
  - Spinal pain [Not Recovered/Not Resolved]
  - Gait inability [Not Recovered/Not Resolved]
  - Bedridden [Unknown]
  - Haemoglobin decreased [Not Recovered/Not Resolved]
  - Decreased appetite [Not Recovered/Not Resolved]
  - Seborrhoea [Not Recovered/Not Resolved]
  - Weight decreased [Not Recovered/Not Resolved]
  - Renal failure [Not Recovered/Not Resolved]
  - Dehydration [Not Recovered/Not Resolved]
  - Blood pressure decreased [Not Recovered/Not Resolved]
  - Oxygen saturation decreased [Not Recovered/Not Resolved]

NARRATIVE: CASE EVENT DATE: 20251001
